FAERS Safety Report 5711602-4 (Version None)
Quarter: 2008Q2

REPORT INFORMATION
  Report Type: 
  Country: None (occurrence: None)
  Receive Date: 20080416
  Receipt Date: 20080404
  Transmission Date: 20081010
  Serious: Yes (Other)
  Sender: FDA-Public Use
  Company Number: TUK2008A00016

PATIENT
  Age: 34 Year
  Sex: Female

DRUGS (7)
  1. ACTOS [Suspect]
     Dates: start: 20070928, end: 20071026
  2. RAMIPRIL [Concomitant]
  3. IRBESARTAN [Concomitant]
  4. SIMVASTATIN [Concomitant]
  5. ASPRIN (ACETYLSALICYLIC ACID) [Concomitant]
  6. AMLODIPINE [Concomitant]
  7. METFORMIN HCL [Concomitant]

REACTIONS (3)
  - HYPERSENSITIVITY [None]
  - RASH MACULO-PAPULAR [None]
  - SKIN IRRITATION [None]
